FAERS Safety Report 8495080 (Version 2)
Quarter: 2012Q4

REPORT INFORMATION
  Report Type: 
  Country: US (occurrence: US)
  Receive Date: 20120405
  Receipt Date: 20121022
  Transmission Date: 20130627
  Serious: Yes (Other)
  Sender: FDA-Public Use
  Company Number: US-US-EMD SERONO, INC.-7122688

PATIENT
  Sex: Female
  Weight: 82 kg

DRUGS (2)
  1. REBIF [Suspect]
     Indication: MULTIPLE SCLEROSIS
     Route: 058
     Dates: start: 20100917
  2. LYRICA [Concomitant]
     Indication: FIBROMYALGIA

REACTIONS (3)
  - Breast cancer [Recovering/Resolving]
  - Rib fracture [Unknown]
  - Fall [Unknown]
